FAERS Safety Report 9028522 (Version 8)
Quarter: 2013Q2

REPORT INFORMATION
  Report Type: Report from Study
  Country: RS (occurrence: RS)
  Receive Date: 20130124
  Receipt Date: 20130411
  Transmission Date: 20140414
  Serious: Yes (Hospitalization)
  Sender: FDA-Public Use
  Company Number: RS-VERTEX PHARMACEUTICALS INC.-2013-001102

PATIENT
  Age: 57 Year
  Sex: Female
  Weight: 55 kg

DRUGS (9)
  1. VX-950 (TELAPREVIR) [Suspect]
     Indication: HEPATITIS C
     Dosage: 1125 MG, BID
     Route: 048
     Dates: start: 20121213, end: 20130118
  2. REBETOL [Suspect]
     Indication: HEPATITIS C
     Dosage: DOSAGE FORM: UNSPECIFIED, 2 3 (5 IN TOTAL) PER DAY
     Route: 048
     Dates: start: 20121213
  3. REBETOL [Suspect]
     Dosage: DOSAGE FORM: UNSPECIFIED
     Route: 048
     Dates: start: 20121218
  4. REBETOL [Suspect]
     Dosage: 200 MG, TID
     Dates: start: 20121218
  5. REBETOL [Suspect]
     Dosage: DOSAGE FORM: UNSPECIFIED
     Route: 048
     Dates: start: 20130110
  6. REBETOL [Suspect]
     Dosage: DOSAGE FORM: UNSPECIFIED
     Route: 048
     Dates: start: 20130117, end: 20130118
  7. REBETOL [Suspect]
     Dosage: DOSAGE FORM: UNSPECIFIED
     Route: 048
  8. PEGINTRON [Suspect]
     Indication: HEPATITIS C
     Dosage: 80 ?G, QW
     Route: 058
     Dates: start: 20121206, end: 20130110
  9. INSULIN MIXTARD [Concomitant]
     Indication: DIABETES MELLITUS
     Dosage: DOSAGE FORM: AMP SC.
     Route: 058
     Dates: start: 20130111

REACTIONS (2)
  - Liver disorder [Recovered/Resolved]
  - Hyperglycaemia [Recovered/Resolved]
